FAERS Safety Report 19174491 (Version 23)
Quarter: 2022Q1

REPORT INFORMATION
  Report Type: Report from Study
  Country: CO (occurrence: CO)
  Receive Date: 20210423
  Receipt Date: 20220317
  Transmission Date: 20220423
  Serious: Yes (Other)
  Sender: FDA-Public Use
  Company Number: CO-TAKEDA-CO202024939

PATIENT
  Age: 70 Year
  Sex: Female
  Weight: 85 kg

DRUGS (12)
  1. ICATIBANT [Suspect]
     Active Substance: ICATIBANT ACETATE
     Indication: Hereditary angioedema
     Dosage: UNK UNK
     Route: 058
     Dates: start: 20151123
  2. ICATIBANT [Suspect]
     Active Substance: ICATIBANT ACETATE
     Indication: Hereditary angioedema
     Dosage: UNK UNK
     Route: 058
     Dates: start: 20151123
  3. ICATIBANT [Suspect]
     Active Substance: ICATIBANT ACETATE
     Dosage: 1 DOSAGE FORM
     Route: 058
     Dates: start: 20151123, end: 20220203
  4. ICATIBANT [Suspect]
     Active Substance: ICATIBANT ACETATE
     Dosage: 1 DOSAGE FORM
     Route: 058
     Dates: start: 20151123, end: 20220203
  5. ICATIBANT [Suspect]
     Active Substance: ICATIBANT ACETATE
     Dosage: 1 DOSAGE FORM, Q6HR
     Route: 058
     Dates: start: 20151123
  6. ICATIBANT [Suspect]
     Active Substance: ICATIBANT ACETATE
     Dosage: 1 DOSAGE FORM, Q6HR
     Route: 058
     Dates: start: 20151123
  7. LOSARTAN [Concomitant]
     Active Substance: LOSARTAN
     Dosage: 50 MILLIGRAM, BID
     Route: 048
  8. LOSARTAN [Concomitant]
     Active Substance: LOSARTAN
     Dosage: 50 MILLIGRAM, Q12H
     Route: 048
  9. TELMISARTAN [Concomitant]
     Active Substance: TELMISARTAN
     Dosage: 40 MILLIGRAM, QD
     Route: 048
  10. HYDROCHLOROTHIAZIDE [Concomitant]
     Active Substance: HYDROCHLOROTHIAZIDE
     Dosage: 25 MILLIGRAM
     Route: 048
  11. ACETAMINOPHEN [Concomitant]
     Active Substance: ACETAMINOPHEN
     Dosage: 500 MILLIGRAM
     Route: 048
  12. ACETAMINOPHEN [Concomitant]
     Active Substance: ACETAMINOPHEN
     Dosage: 1 DOSAGE FORM
     Route: 048

REACTIONS (8)
  - Pleural effusion [Unknown]
  - COVID-19 [Recovered/Resolved with Sequelae]
  - Epistaxis [Recovered/Resolved]
  - Hypoacusis [Recovered/Resolved with Sequelae]
  - Vomiting [Recovered/Resolved]
  - Viral infection [Recovered/Resolved]
  - Abdominal discomfort [Recovered/Resolved]
  - Drug ineffective [Unknown]

NARRATIVE: CASE EVENT DATE: 20200701
